FAERS Safety Report 6254898-5 (Version None)
Quarter: 2009Q3

REPORT INFORMATION
  Report Type: 
  Country: None (occurrence: None)
  Receive Date: 20090702
  Receipt Date: 20090630
  Transmission Date: 20100115
  Serious: Yes (Other)
  Sender: FDA-Public Use
  Company Number: CH-BRISTOL-MYERS SQUIBB COMPANY-14568885

PATIENT
  Age: 53 Year
  Sex: Female

DRUGS (7)
  1. REYATAZ [Suspect]
     Indication: HIV INFECTION
     Dosage: INCREASED TO 450MG/D; ALSO TAKEN THROUGH IV
     Route: 048
     Dates: start: 20040503, end: 20080701
  2. NORVIR [Suspect]
     Indication: HIV INFECTION
     Route: 048
     Dates: start: 20040501, end: 20080101
  3. TENOFOVIR [Suspect]
     Dosage: MAY-2004 TO NOW
     Dates: start: 20040501
  4. LAMIVUDINE [Suspect]
     Dates: start: 20040501, end: 20080701
  5. ANTIHYPERTENSIVE [Suspect]
     Indication: HYPERTENSION
  6. NORVASC [Concomitant]
     Dates: start: 20020716, end: 20040701
  7. ZESTRIL [Concomitant]
     Dates: start: 20040701, end: 20041206

REACTIONS (1)
  - WEIGHT INCREASED [None]
